FAERS Safety Report 10089929 (Version 1)
Quarter: 2014Q2

REPORT INFORMATION
  Report Type: Spontaneous
  Country: US (occurrence: US)
  Receive Date: 20140421
  Receipt Date: 20140421
  Transmission Date: 20141212
  Serious: No
  Sender: FDA-Public Use
  Company Number: US-ABBVIE-14P-163-1193535-00

PATIENT
  Age: 7 Year
  Sex: Female
  Weight: 31 kg

DRUGS (1)
  1. LUPRON DEPOT-PED (3 MONTH) [Suspect]
     Indication: PRECOCIOUS PUBERTY
     Dates: start: 20131112

REACTIONS (8)
  - Panniculitis [Recovering/Resolving]
  - Pain in extremity [Recovering/Resolving]
  - Joint effusion [Recovering/Resolving]
  - Gait disturbance [Recovering/Resolving]
  - Injection site warmth [Unknown]
  - Injection site induration [Unknown]
  - Red blood cell sedimentation rate increased [Not Recovered/Not Resolved]
  - Injection site pain [Recovered/Resolved]
